FAERS Safety Report 21224533 (Version 12)
Quarter: 2024Q1

REPORT INFORMATION
  Report Type: Spontaneous
  Country: AT (occurrence: AT)
  Receive Date: 20220817
  Receipt Date: 20240222
  Transmission Date: 20240410
  Serious: Yes (Hospitalization, Other)
  Sender: FDA-Public Use
  Company Number: AT-ROCHE-3137316

PATIENT
  Sex: Female

DRUGS (92)
  1. TUKYSA [Suspect]
     Active Substance: TUCATINIB
     Indication: Breast cancer metastatic
     Dosage: 300 MG, MULTIPLE 1 DAYS
     Route: 048
     Dates: start: 20210929
  2. TUKYSA [Suspect]
     Active Substance: TUCATINIB
     Dosage: 300 MG, BID
     Route: 048
     Dates: start: 20210430, end: 20221023
  3. TRASTUZUMAB [Suspect]
     Active Substance: TRASTUZUMAB
     Indication: Breast cancer metastatic
     Dosage: IV DRIP, EVERY 3 WEEKS
     Route: 042
     Dates: start: 20190906
  4. TRASTUZUMAB [Suspect]
     Active Substance: TRASTUZUMAB
     Dosage: 6 MG/KG, SINGLE 3 WEEKS
     Route: 042
     Dates: start: 20170202
  5. TRASTUZUMAB [Suspect]
     Active Substance: TRASTUZUMAB
     Dosage: IV DRIP, EVERY 3 WEEKS
     Route: 042
     Dates: start: 20170227, end: 20180108
  6. TRASTUZUMAB [Suspect]
     Active Substance: TRASTUZUMAB
     Dosage: IV DRIP, EVERY 3 WEEKS
     Route: 042
     Dates: start: 20170112, end: 20170112
  7. TRASTUZUMAB [Suspect]
     Active Substance: TRASTUZUMAB
     Dosage: IV DRIP, EVERY 3 WEEKS, MOST RECENT DOSE PRIOR TO THE EVENT: 6/SEP/2019
     Route: 042
     Dates: start: 20161020, end: 20161020
  8. TRASTUZUMAB [Suspect]
     Active Substance: TRASTUZUMAB
     Dosage: 6 MG/KG, SINGLE 3 WEEKS
     Route: 042
     Dates: start: 20210929, end: 20220930
  9. PERTUZUMAB [Suspect]
     Active Substance: PERTUZUMAB
     Indication: Breast cancer metastatic
     Dosage: ONCE IN EVERY 3 WEEKS
     Route: 042
     Dates: start: 20170112, end: 20170112
  10. PERTUZUMAB [Suspect]
     Active Substance: PERTUZUMAB
     Dosage: 420 MG, Q3WEEKS
     Route: 042
     Dates: start: 20170227, end: 20180108
  11. PERTUZUMAB [Suspect]
     Active Substance: PERTUZUMAB
     Dosage: 420 MG, SINGLE 3 WEEKS
     Route: 042
     Dates: start: 20170202
  12. PERTUZUMAB [Suspect]
     Active Substance: PERTUZUMAB
     Dosage: ONCE IN EVERY 3 WEEKS
     Route: 042
     Dates: start: 20190906, end: 20210409
  13. PERTUZUMAB [Suspect]
     Active Substance: PERTUZUMAB
     Dosage: ONCE IN EVERY 3 WEEKS
     Route: 042
     Dates: start: 20161020, end: 20161020
  14. CAPECITABINE [Suspect]
     Active Substance: CAPECITABINE
     Indication: Breast cancer metastatic
     Dosage: DAY 1 - DAY 14, BID
     Route: 048
     Dates: start: 20210430, end: 20210930
  15. CAPECITABINE [Suspect]
     Active Substance: CAPECITABINE
     Dosage: DAY 1 - DAY 14, BID
     Route: 048
     Dates: start: 20220204
  16. CAPECITABINE [Suspect]
     Active Substance: CAPECITABINE
     Dosage: FREQUENCY: OTHER
     Route: 048
     Dates: start: 20210430
  17. CAPECITABINE [Suspect]
     Active Substance: CAPECITABINE
     Dosage: 500 MG (FREQUENCY NOT REPORTED)
     Route: 048
     Dates: start: 20220930, end: 20221024
  18. CAPECITABINE [Suspect]
     Active Substance: CAPECITABINE
     Dosage: 1000 MG (FREQUENCY NOT REPORTED)
     Route: 048
     Dates: start: 20210929
  19. CAPECITABINE [Suspect]
     Active Substance: CAPECITABINE
     Dosage: DAY 1 - DAY 14, BID
     Route: 048
     Dates: start: 20210904, end: 20220114
  20. CAPECITABINE [Suspect]
     Active Substance: CAPECITABINE
     Dosage: 1000 MG, BID
     Route: 048
     Dates: start: 20210404, end: 20220114
  21. LOPERAMIDE [Suspect]
     Active Substance: LOPERAMIDE
     Indication: Diarrhoea
     Dosage: 2 MG
     Route: 048
     Dates: start: 20171106, end: 20171127
  22. LOPERAMIDE [Suspect]
     Active Substance: LOPERAMIDE
     Dosage: 2 MILLIGRAM AS NECESSARY
     Route: 048
     Dates: start: 20171127
  23. KADCYLA [Suspect]
     Active Substance: ADO-TRASTUZUMAB EMTANSINE
     Indication: Breast cancer metastatic
     Dosage: EVERY 3 WEEKS
     Route: 042
     Dates: start: 20180205, end: 20190816
  24. TAXOTERE [Suspect]
     Active Substance: DOCETAXEL
     Indication: Breast cancer metastatic
     Dosage: ONCE IN EVERY 3 WEEKS
     Route: 042
     Dates: start: 20161201, end: 20161222
  25. TAXOTERE [Suspect]
     Active Substance: DOCETAXEL
     Dosage: ONCE IN EVERY 3 WEEKS
     Route: 042
     Dates: start: 20161020, end: 20161020
  26. TAXOTERE [Suspect]
     Active Substance: DOCETAXEL
     Dosage: ONCE IN EVERY 3 WEEKS
     Route: 042
     Dates: start: 20170112, end: 20170202
  27. TAXOTERE [Suspect]
     Active Substance: DOCETAXEL
     Dosage: ONCE IN EVERY 3 WEEKS
     Route: 042
     Dates: start: 20161111, end: 20161111
  28. CYTOXAN [Suspect]
     Active Substance: CYCLOPHOSPHAMIDE
     Indication: Breast cancer metastatic
     Dosage: OTHER MOST RECENT DOSE PRIOR TO AE 05/OCT/2016
     Route: 042
     Dates: start: 20161005, end: 20161005
  29. ELLENCE [Suspect]
     Active Substance: EPIRUBICIN HYDROCHLORIDE
     Indication: Breast cancer metastatic
     Dosage: ONE CYCLE PER REGIMEN
     Route: 042
     Dates: start: 20161005, end: 20161005
  30. FAM-TRASTUZUMAB DERUXTECAN-NXKI [Suspect]
     Active Substance: FAM-TRASTUZUMAB DERUXTECAN-NXKI
     Indication: Product used for unknown indication
     Dosage: X 5.4 MILLIGRAM/KG IN 3 WEEK
     Route: 042
     Dates: start: 20220924, end: 20221114
  31. FAM-TRASTUZUMAB DERUXTECAN-NXKI [Suspect]
     Active Substance: FAM-TRASTUZUMAB DERUXTECAN-NXKI
     Dosage: X 4.4 MILLIGRAM/KG IN 3 WEEK
     Route: 042
     Dates: start: 20221202, end: 20230714
  32. FAM-TRASTUZUMAB DERUXTECAN-NXKI [Suspect]
     Active Substance: FAM-TRASTUZUMAB DERUXTECAN-NXKI
     Dosage: X 4.4 MILLIGRAM/KG IN 3 WEEK
     Route: 042
     Dates: start: 20230811
  33. METOCLOPRAMIDE [Concomitant]
     Active Substance: METOCLOPRAMIDE
     Indication: Prophylaxis of nausea and vomiting
     Dosage: 10 MG, Q3WEEKS
     Route: 042
     Dates: start: 20180205, end: 20190816
  34. PANTOPRAZOLE SODIUM [Concomitant]
     Active Substance: PANTOPRAZOLE SODIUM
     Dosage: 40 MG, QD
     Route: 048
     Dates: start: 20161031, end: 20161123
  35. PANTOPRAZOLE SODIUM [Concomitant]
     Active Substance: PANTOPRAZOLE SODIUM
     Dosage: 40 MG, BID
     Route: 048
     Dates: start: 20161018, end: 20161030
  36. PANTOPRAZOLE SODIUM [Concomitant]
     Active Substance: PANTOPRAZOLE SODIUM
     Dosage: 40 MG, BID
     Route: 042
     Dates: start: 20161010, end: 20161018
  37. METOCLOPRAMIDE HYDROCHLORIDE [Concomitant]
     Active Substance: METOCLOPRAMIDE HYDROCHLORIDE
     Indication: Nausea
     Dosage: 3 AMPULE
     Route: 042
     Dates: start: 20161113
  38. BISOPROLOL FUMARATE [Concomitant]
     Active Substance: BISOPROLOL FUMARATE
     Indication: Prophylaxis
     Dosage: 2.5 MG TWICE DAILY
     Route: 048
     Dates: start: 20170227
  39. LASIX [Concomitant]
     Active Substance: FUROSEMIDE
     Indication: Prophylaxis
     Dosage: 30 MG, QD
     Route: 048
     Dates: start: 20161114, end: 201611
  40. LASIX [Concomitant]
     Active Substance: FUROSEMIDE
     Dosage: 40 MG, QD
     Route: 042
     Dates: start: 20161112, end: 20161114
  41. LIPEGFILGRASTIM [Concomitant]
     Active Substance: LIPEGFILGRASTIM
     Indication: Prophylaxis
     Dosage: 6 MG, Q3WEEKS
     Route: 058
     Dates: start: 20170113, end: 20170203
  42. BISOPROLOL FUMARATE [Concomitant]
     Active Substance: BISOPROLOL FUMARATE
     Dosage: 1.25 MG, QD
     Route: 048
     Dates: start: 20161117, end: 20170226
  43. AMOXICILLIN\CLAVULANATE POTASSIUM [Concomitant]
     Active Substance: AMOXICILLIN\CLAVULANATE POTASSIUM
     Dosage: 1 G, BID
     Route: 048
     Dates: start: 20161212, end: 20161216
  44. FENTANYL [Concomitant]
     Active Substance: FENTANYL\FENTANYL CITRATE
     Indication: Pain prophylaxis
     Dosage: 25 ?G, TID
     Route: 062
     Dates: start: 201706
  45. MOVICOL [Concomitant]
     Active Substance: POLYETHYLENE GLYCOL 3350\POTASSIUM CHLORIDE\SODIUM BICARBONATE\SODIUM CHLORIDE
     Indication: Constipation prophylaxis
     Dosage: 1200 MG
     Route: 048
     Dates: end: 201706
  46. GUAR GUM [Concomitant]
     Active Substance: GUAR GUM
     Indication: Prophylaxis
     Dosage: UNK
     Route: 048
     Dates: start: 20161102, end: 2016
  47. LEVETIRACETAM [Concomitant]
     Active Substance: LEVETIRACETAM
     Indication: Epilepsy
     Dosage: 750 MG TWICE DAILY
     Route: 048
     Dates: start: 20220201
  48. RAMIPRIL [Concomitant]
     Active Substance: RAMIPRIL
     Indication: Cardiovascular event prophylaxis
     Dosage: 15 MG
     Route: 048
     Dates: start: 20170227
  49. RAMIPRIL [Concomitant]
     Active Substance: RAMIPRIL
     Dosage: 15 MG, BID
     Route: 048
     Dates: start: 20170227
  50. RAMIPRIL [Concomitant]
     Active Substance: RAMIPRIL
     Dosage: UNK, BID
     Route: 048
     Dates: start: 20161222, end: 20170226
  51. RAMIPRIL [Concomitant]
     Active Substance: RAMIPRIL
     Dosage: 2.5 MG TWICE DAILY
     Route: 048
     Dates: start: 20161112, end: 20161221
  52. FILGRASTIM [Concomitant]
     Active Substance: FILGRASTIM
     Dosage: 48 IU, QWEEK
     Route: 058
     Dates: start: 20161208, end: 20161211
  53. DEXAMETHASONE [Concomitant]
     Active Substance: DEXAMETHASONE
     Indication: Prophylaxis
     Dosage: 8 MG, BID
     Route: 048
     Dates: start: 20180117, end: 20180122
  54. DEXAMETHASONE [Concomitant]
     Active Substance: DEXAMETHASONE
     Dosage: 8 MG, BID
     Route: 048
     Dates: start: 20161202, end: 20161203
  55. HALCION [Concomitant]
     Active Substance: TRIAZOLAM
     Indication: Sleep disorder
     Dosage: UNK
     Route: 048
     Dates: start: 2016, end: 201610
  56. ONDANSETRON HYDROCHLORIDE [Concomitant]
     Active Substance: ONDANSETRON HYDROCHLORIDE
     Indication: Nausea
     Dosage: 8 MG
     Route: 048
     Dates: start: 20181105
  57. VITAMINS WITH MINERALS [Concomitant]
     Active Substance: MINERALS\VITAMINS
     Indication: Prophylaxis
     Dosage: 1 DF TWICE DAILY
     Route: 048
     Dates: start: 20161112
  58. CEOLAT [Concomitant]
     Indication: Prophylaxis of nausea and vomiting
     Dosage: 10 ML
     Route: 048
     Dates: start: 20161112, end: 201702
  59. TAZOBACTAM [Concomitant]
     Active Substance: TAZOBACTAM
     Dosage: 4.5 G, QD
     Route: 042
     Dates: start: 20161208, end: 20161212
  60. DEXAMETHASONE [Concomitant]
     Active Substance: DEXAMETHASONE
     Indication: Headache
     Dosage: UNK
     Dates: start: 20221123, end: 20221215
  61. DEXAMETHASONE [Concomitant]
     Active Substance: DEXAMETHASONE
     Dosage: 8 MG, QD
     Route: 048
     Dates: start: 20180817, end: 20180831
  62. KCL [Concomitant]
     Active Substance: POTASSIUM CHLORIDE
     Indication: Prophylaxis
     Dosage: 1200 MG, BID
     Route: 048
     Dates: start: 20161117, end: 201702
  63. HYDROMORPHONE HYDROCHLORIDE [Concomitant]
     Active Substance: HYDROMORPHONE HYDROCHLORIDE
     Indication: Pain prophylaxis
     Dosage: 2 MG
     Route: 048
     Dates: start: 20190816, end: 20210326
  64. HYDROMORPHONE HYDROCHLORIDE [Concomitant]
     Active Substance: HYDROMORPHONE HYDROCHLORIDE
     Dosage: 4 MG TWICE DAILY
     Route: 048
     Dates: start: 20210410
  65. HYDROMORPHONE HYDROCHLORIDE [Concomitant]
     Active Substance: HYDROMORPHONE HYDROCHLORIDE
     Dosage: 1.3 MG
     Route: 048
     Dates: start: 201706, end: 20210309
  66. HYDROMORPHONE HYDROCHLORIDE [Concomitant]
     Active Substance: HYDROMORPHONE HYDROCHLORIDE
     Dosage: UNK
     Dates: start: 20210309
  67. HYDROMORPHONE HYDROCHLORIDE [Concomitant]
     Active Substance: HYDROMORPHONE HYDROCHLORIDE
     Dosage: 2 MG, BID
     Route: 048
     Dates: start: 20210326, end: 20210409
  68. GLANDOMED [Concomitant]
     Dosage: AS NECESSARY
     Route: 061
     Dates: start: 20161208, end: 20161222
  69. ZOFRAN [Concomitant]
     Active Substance: ONDANSETRON HYDROCHLORIDE
     Indication: Prophylaxis of nausea and vomiting
     Dosage: 8 MG
     Route: 048
     Dates: start: 20161123, end: 20170204
  70. XARELTO [Concomitant]
     Active Substance: RIVAROXABAN
     Dosage: 10 MG, QD
     Route: 048
     Dates: start: 20161026, end: 201612
  71. CLOBAZAM [Concomitant]
     Active Substance: CLOBAZAM
     Indication: Epilepsy
     Dosage: 5 TABLET
     Route: 048
     Dates: start: 20220201
  72. ARANESP [Concomitant]
     Active Substance: DARBEPOETIN ALFA
     Indication: Anaemia prophylaxis
     Dosage: 150 ?G, QMONTH
     Route: 058
     Dates: start: 20161201, end: 201701
  73. ARANESP [Concomitant]
     Active Substance: DARBEPOETIN ALFA
     Dosage: 150 ?G, QWEEK
     Route: 058
     Dates: start: 20161201, end: 201701
  74. DEXIBUPROFEN [Concomitant]
     Active Substance: DEXIBUPROFEN
     Indication: Pain prophylaxis
     Dosage: 400 MG TRICE DAILY
     Route: 048
     Dates: start: 20210312
  75. XGEVA [Concomitant]
     Active Substance: DENOSUMAB
     Indication: Prophylaxis
     Dosage: 120 MILLIGRAM IN 1 MONTH
     Route: 058
     Dates: start: 20161201
  76. PERFALGAN [Concomitant]
     Active Substance: ACETAMINOPHEN
     Dosage: 1 G, QD
     Route: 042
     Dates: start: 20161208, end: 20161212
  77. HALDOL [Concomitant]
     Active Substance: HALOPERIDOL
     Indication: Prophylaxis of nausea and vomiting
     Dosage: 4 GTT, BID
     Route: 048
     Dates: start: 201702
  78. ALPRAZOLAM [Concomitant]
     Active Substance: ALPRAZOLAM
     Dosage: AS NECESSARY
     Route: 048
     Dates: start: 20161117
  79. SERTRALINE HYDROCHLORIDE [Concomitant]
     Active Substance: SERTRALINE HYDROCHLORIDE
     Dosage: 50 MG
     Route: 048
     Dates: start: 201710
  80. SUCRALAN [Concomitant]
     Indication: Prophylaxis
     Dosage: 5 MILLILITRE IN 1 AS NECESSARY
     Route: 048
     Dates: start: 201612, end: 20161212
  81. SUCRALAN [Concomitant]
     Dosage: UNK
     Dates: start: 20161215
  82. LAXAGOL [Concomitant]
     Dosage: UNK
     Dates: start: 20201120
  83. MILNACIPRAN [Concomitant]
     Active Substance: MILNACIPRAN
     Dosage: UNK
     Dates: start: 20221123
  84. SERTRALINE [Concomitant]
     Active Substance: SERTRALINE HYDROCHLORIDE
     Indication: Depression
     Dosage: UNK
     Route: 048
     Dates: start: 20171016
  85. SERTRALINE [Concomitant]
     Active Substance: SERTRALINE HYDROCHLORIDE
     Dosage: UNK
     Route: 048
     Dates: start: 20230714
  86. LEVOCETIRIZINE DIHYDROCHLORIDE [Concomitant]
     Active Substance: LEVOCETIRIZINE DIHYDROCHLORIDE
     Dosage: UNK
     Dates: start: 20220801
  87. TRAZODONE HYDROCHLORIDE [Concomitant]
     Active Substance: TRAZODONE HYDROCHLORIDE
     Dosage: UNK
     Dates: start: 20221129
  88. APREPITANT [Concomitant]
     Active Substance: APREPITANT
     Dosage: UNK
     Dates: start: 20221123
  89. ESOMEPRAZOLE [Concomitant]
     Active Substance: ESOMEPRAZOLE
     Dosage: UNK
     Dates: start: 20221123
  90. FILGRASTIM [Concomitant]
     Active Substance: FILGRASTIM
     Dosage: UNK
     Dates: start: 20230811, end: 20230924
  91. SPIRONOLACTONE [Concomitant]
     Active Substance: SPIRONOLACTONE
     Dosage: UNK
     Dates: start: 20230811
  92. VIMPAT [Concomitant]
     Active Substance: LACOSAMIDE
     Dosage: UNK
     Dates: start: 20230602

REACTIONS (6)
  - White blood cell count decreased [Recovered/Resolved]
  - Skin fissures [Recovered/Resolved]
  - White blood cell count decreased [Not Recovered/Not Resolved]
  - Nausea [Recovered/Resolved]
  - Hemianopia [Recovered/Resolved]
  - Thrombocytopenia [Recovering/Resolving]

NARRATIVE: CASE EVENT DATE: 20180522
